FAERS Safety Report 22612431 (Version 3)
Quarter: 2025Q3

REPORT INFORMATION
  Report Type: Spontaneous
  Country: US (occurrence: US)
  Receive Date: 20230617
  Receipt Date: 20250816
  Transmission Date: 20251021
  Serious: No
  Sender: AMGEN
  Company Number: US-AMGEN-USASP2023103738

PATIENT
  Sex: Female

DRUGS (28)
  1. OTEZLA [Suspect]
     Active Substance: APREMILAST
     Indication: Psoriasis
     Dosage: 30 MILLIGRAM, BID
     Route: 048
     Dates: start: 20220422
  2. PREDNISONE [Suspect]
     Active Substance: PREDNISONE
     Indication: Product used for unknown indication
     Route: 065
  3. ACYCLOVIR [Concomitant]
     Active Substance: ACYCLOVIR
  4. ACYCLOVIR [Concomitant]
     Active Substance: ACYCLOVIR
  5. BENLYSTA [Concomitant]
     Active Substance: BELIMUMAB
  6. FAMOTIDINE [Concomitant]
     Active Substance: FAMOTIDINE
  7. FOLIC ACID [Concomitant]
     Active Substance: FOLIC ACID
  8. GABAPENTIN [Concomitant]
     Active Substance: GABAPENTIN
  9. HYDROXYCHLOROQUINE SULFATE [Concomitant]
     Active Substance: HYDROXYCHLOROQUINE SULFATE
  10. LEFLUNOMIDE [Concomitant]
     Active Substance: LEFLUNOMIDE
  11. METHOCARBAMOL [Concomitant]
     Active Substance: METHOCARBAMOL
  12. METHOTREXATE [Concomitant]
     Active Substance: METHOTREXATE
  13. METHYLPREDNISOLONE [Concomitant]
     Active Substance: METHYLPREDNISOLONE
  14. NIFEDIPINE [Concomitant]
     Active Substance: NIFEDIPINE
  15. OSELTAMIVIR [Concomitant]
     Active Substance: OSELTAMIVIR
  16. SYNTHROID [Concomitant]
     Active Substance: LEVOTHYROXINE SODIUM
  17. TRAMADOL [Concomitant]
     Active Substance: TRAMADOL
  18. Triamcinolon [Concomitant]
  19. VALACYCLOVIR [Concomitant]
     Active Substance: VALACYCLOVIR HYDROCHLORIDE
  20. BUTALBITAL, ACETAMINOPHEN, AND CAFFEINE [Concomitant]
     Active Substance: ACETAMINOPHEN\BUTALBITAL\CAFFEINE
  21. CLOBETASOL [Concomitant]
     Active Substance: CLOBETASOL
  22. LEUCOVORIN CALCIUM [Concomitant]
     Active Substance: LEUCOVORIN CALCIUM
  23. MUPIROCIN [Concomitant]
     Active Substance: MUPIROCIN
  24. AZITHROMYCIN [Concomitant]
     Active Substance: AZITHROMYCIN
  25. KETOROLAC [Concomitant]
     Active Substance: KETOROLAC TROMETHAMINE
  26. MELOXICAM [Concomitant]
     Active Substance: MELOXICAM
  27. ONDANSETRON [Concomitant]
     Active Substance: ONDANSETRON
  28. VITAMIN D [Concomitant]
     Active Substance: VITAMIN D NOS

REACTIONS (4)
  - Pain [Unknown]
  - Psoriasis [Recovering/Resolving]
  - Therapy non-responder [Not Recovered/Not Resolved]
  - Discomfort [Not Recovered/Not Resolved]
